FAERS Safety Report 7294575-5 (Version None)
Quarter: 2011Q1

REPORT INFORMATION
  Report Type: 
  Country: None (occurrence: None)
  Receive Date: 20110216
  Receipt Date: 20110203
  Transmission Date: 20110831
  Serious: No
  Sender: FDA-Public Use
  Company Number: US-BIOGENIDEC-2011BI005141

PATIENT
  Age: 37 Year
  Sex: Female

DRUGS (2)
  1. AVONEX [Concomitant]
     Indication: MULTIPLE SCLEROSIS
     Route: 030
     Dates: start: 20051121
  2. TYSABRI [Suspect]
     Indication: MULTIPLE SCLEROSIS
     Route: 042
     Dates: start: 20100108

REACTIONS (1)
  - VIRAL INFECTION [None]
